FAERS Safety Report 7291727-5 (Version None)
Quarter: 2011Q1

REPORT INFORMATION
  Report Type: 
  Country: None (occurrence: None)
  Receive Date: 20110214
  Receipt Date: 20110207
  Transmission Date: 20110831
  Serious: Yes (Hospitalization, Other)
  Sender: FDA-Public Use
  Company Number: CA-PFIZER INC-2010018538

PATIENT
  Age: 51 Year
  Sex: Female

DRUGS (6)
  1. RISPERDAL [Concomitant]
     Dosage: 1 MG, 2X/DAY
  2. PROPRANOLOL [Concomitant]
     Dosage: 10 MG, 2X/DAY
  3. CARBAMAZEPINE [Concomitant]
     Dosage: UNK
  4. DIXARIT [Concomitant]
     Dosage: 0.025 MG, 2X/DAY
  5. CHAMPIX [Suspect]
     Indication: SMOKING CESSATION THERAPY
     Dosage: 1 TABLET TWICE DAILY
     Dates: start: 20071101, end: 20071121
  6. FLOVENT [Concomitant]
     Dosage: UNK

REACTIONS (4)
  - NAUSEA [None]
  - CONDITION AGGRAVATED [None]
  - DEPRESSION [None]
  - VOMITING [None]
